FAERS Safety Report 8943240 (Version 2)
Quarter: 2013Q2

REPORT INFORMATION
  Report Type: Report from Study
  Country: JP (occurrence: JP)
  Receive Date: 20121204
  Receipt Date: 20130423
  Transmission Date: 20140414
  Serious: Yes (Life-Threatening, Hospitalization, Other)
  Sender: FDA-Public Use
  Company Number: JP-009507513-1208JPN000037

PATIENT
  Age: 62 Year
  Sex: Male
  Weight: 63 kg

DRUGS (8)
  1. PEGINTRON [Suspect]
     Indication: CHRONIC HEPATITIS C
     Dosage: 1.5 MICROGRAM PER KILOGRAM, QW
     Route: 058
     Dates: start: 20120514, end: 20120528
  2. PEGINTRON [Suspect]
     Dosage: 60 MICROGRAM, QW
     Route: 058
     Dates: start: 20120531, end: 20120615
  3. REBETOL [Suspect]
     Indication: CHRONIC HEPATITIS C
     Dosage: 800 MG, QD
     Route: 048
     Dates: start: 20120514, end: 20120524
  4. REBETOL [Suspect]
     Dosage: 600 MG, QD
     Route: 048
     Dates: start: 20120524, end: 20120528
  5. REBETOL [Suspect]
     Dosage: 400 MG, QD
     Route: 048
     Dates: start: 20120531, end: 20120610
  6. REBETOL [Suspect]
     Dosage: 200 MG, QD
     Route: 048
     Dates: start: 20120611, end: 20120615
  7. TELAVIC [Suspect]
     Indication: CHRONIC HEPATITIS C
     Dosage: 2250 MG, QD
     Route: 048
     Dates: start: 20120514, end: 20120524
  8. TELAVIC [Suspect]
     Dosage: 1500 MG, QD
     Route: 048
     Dates: start: 20120524, end: 20120528

REACTIONS (2)
  - Hyperbilirubinaemia [Recovering/Resolving]
  - Retinal haemorrhage [Not Recovered/Not Resolved]
